FAERS Safety Report 6898548-3 (Version None)
Quarter: 2010Q3

REPORT INFORMATION
  Report Type: 
  Country: None (occurrence: None)
  Receive Date: 20100802
  Receipt Date: 20071029
  Transmission Date: 20110219
  Serious: No
  Sender: FDA-Public Use
  Company Number: US-PFIZER INC-2007091724

PATIENT
  Sex: Male
  Weight: 127.27 kg

DRUGS (13)
  1. LYRICA [Suspect]
     Indication: NEUROPATHY PERIPHERAL
     Dates: start: 20071001
  2. EPOETIN ALFA [Concomitant]
     Dosage: 1 EVERY 2 WEEKS40000 UNITS
     Route: 058
  3. ACETYLSALICYLIC ACID SRT [Concomitant]
  4. PROSCAR [Concomitant]
  5. PLAVIX [Concomitant]
  6. NORVASC [Concomitant]
  7. FUROSEMIDE [Concomitant]
  8. HYDRALAZINE HCL [Concomitant]
  9. ISOSORBIDE [Concomitant]
  10. TAMSULOSIN HYDROCHLORIDE [Concomitant]
  11. LIPITOR [Concomitant]
  12. AMARYL [Concomitant]
  13. ALL OTHER THERAPEUTIC PRODUCTS [Concomitant]

REACTIONS (1)
  - DRY MOUTH [None]
